FAERS Safety Report 5017510-9 (Version None)
Quarter: 2006Q2

REPORT INFORMATION
  Report Type: 
  Country: None (occurrence: None)
  Receive Date: 20060601
  Receipt Date: 20060601
  Transmission Date: 20061013
  Serious: Yes (Hospitalization)
  Sender: FDA-Public Use
  Company Number: None

PATIENT
  Sex: Male
  Weight: 114 kg

DRUGS (16)
  1. IMATINIB MESYLATE, 100MG TABLETS, NOVARTIS PHARM. [Suspect]
     Indication: MALIGNANT GLIOMA
     Dosage: 500MG  BID FOR 8 DAYS  PO
     Route: 048
     Dates: start: 20060228, end: 20060307
  2. IMATINIB MESYLATE, 100MG TABLETS, NOVARTIS PHARM. [Suspect]
     Indication: MALIGNANT GLIOMA
     Dosage: 500MG  BID FOR 8 DAYS  PO
     Route: 048
     Dates: start: 20060408, end: 20060415
  3. TEMOZOLOMIDE, SCHERING-PLOUGH [Suspect]
     Indication: MALIGNANT GLIOMA
     Dosage: SEE IMAGE
     Route: 048
     Dates: start: 20060303, end: 20060307
  4. TEMOZOLOMIDE, SCHERING-PLOUGH [Suspect]
     Indication: MALIGNANT GLIOMA
     Dosage: SEE IMAGE
     Route: 048
     Dates: start: 20060411, end: 20060415
  5. KEPPRA [Concomitant]
  6. ZOCOR [Concomitant]
  7. LEXAPRO [Concomitant]
  8. M.V.I. [Concomitant]
  9. PROTONIX [Concomitant]
  10. DECADRON [Concomitant]
  11. MOTRIN [Concomitant]
  12. ALAVERT [Concomitant]
  13. ZOFRAN [Concomitant]
  14. KYTRIL [Concomitant]
  15. ANZEMET [Concomitant]
  16. LOMOTIL [Concomitant]

REACTIONS (15)
  - ARTHRALGIA [None]
  - BRAIN OEDEMA [None]
  - CELLULITIS [None]
  - CONFUSIONAL STATE [None]
  - DEEP VEIN THROMBOSIS [None]
  - FAECAL INCONTINENCE [None]
  - HEMIPARESIS [None]
  - INFECTION [None]
  - MUSCULAR WEAKNESS [None]
  - NEOPLASM PROGRESSION [None]
  - PULMONARY EMBOLISM [None]
  - TACHYCARDIA [None]
  - THERAPY NON-RESPONDER [None]
  - TREMOR [None]
  - URINARY INCONTINENCE [None]
